FAERS Safety Report 20520335 (Version 4)
Quarter: 2024Q4

REPORT INFORMATION
  Report Type: Spontaneous
  Country: US (occurrence: US)
  Receive Date: 20220225
  Receipt Date: 20241217
  Transmission Date: 20250114
  Serious: Yes (Other)
  Sender: PFIZER
  Company Number: US-PFIZER INC-202200157457

PATIENT
  Age: 67 Year
  Sex: Female

DRUGS (10)
  1. IBRANCE [Suspect]
     Active Substance: PALBOCICLIB
     Indication: Breast cancer
     Dosage: 125 MG, ONCE DAILY WITH FOOD 21 DAYS FOLLOWED BY 7 DAYS OFF TREATMENT (D1-21), EVERY 28 DAYS CYCLE
     Route: 048
     Dates: start: 20210625
  2. IBRANCE [Suspect]
     Active Substance: PALBOCICLIB
     Indication: Breast cancer female
     Dosage: 75 MG
     Dates: start: 20210424
  3. IBRANCE [Suspect]
     Active Substance: PALBOCICLIB
     Indication: Bone cancer
     Dosage: 75 MG, ONCE DAILY WITH FOOD FOR 21 DAYS FOLLOWED BY 7 DAYS OFF
     Route: 048
  4. IBRANCE [Suspect]
     Active Substance: PALBOCICLIB
     Dosage: (100 MG) TABLET ORAL TAKE AS DIRECTED
     Route: 048
     Dates: start: 20210625
  5. IBRANCE [Suspect]
     Active Substance: PALBOCICLIB
     Dosage: (100 MG) TABLET ORAL TAKE AS DIRECTED
     Route: 048
     Dates: start: 20210613
  6. IBRANCE [Suspect]
     Active Substance: PALBOCICLIB
     Dosage: (75 MG) TABLET ORAL TAKE AS DIRECTED; WHEN SHE RESUMES IBRANCE, SHE WILL BE ON 75 MG DAILY X 2 WEEKS
     Route: 048
     Dates: start: 20210927
  7. IBRANCE [Suspect]
     Active Substance: PALBOCICLIB
     Indication: Breast cancer female
     Dosage: (125 MG) CAPSULE ORAL TAKE AS DIRECTED
     Route: 048
     Dates: start: 20200127
  8. IBRANCE [Suspect]
     Active Substance: PALBOCICLIB
     Indication: Bone cancer
     Dosage: (125 MG) CAPSULE ORAL TAKE AS DIRECTED
     Route: 048
     Dates: start: 20200730
  9. FASLODEX [Suspect]
     Active Substance: FULVESTRANT
     Indication: Breast cancer female
     Dosage: UNK
  10. FULVESTRANT [Concomitant]
     Active Substance: FULVESTRANT
     Dosage: 500 MG, EVERY (Q) 28 DAYS (LOAD+MAINTENANCE)

REACTIONS (10)
  - Thrombocytopenia [Unknown]
  - Off label use [Unknown]
  - Fatigue [Unknown]
  - Pain [Unknown]
  - Neoplasm progression [Unknown]
  - Platelet count decreased [Unknown]
  - Neutrophil count decreased [Unknown]
  - Body mass index [Unknown]
  - Hepatic steatosis [Unknown]
  - Spleen disorder [Unknown]
